FAERS Safety Report 13656576 (Version 1)
Quarter: 2017Q2

REPORT INFORMATION
  Report Type: Report from Study
  Country: US (occurrence: US)
  Receive Date: 20170615
  Receipt Date: 20170615
  Transmission Date: 20170830
  Serious: Yes (Death)
  Sender: FDA-Public Use
  Company Number: US-TORRENT-00002920

PATIENT
  Age: 73 Year
  Sex: Female

DRUGS (4)
  1. TRAMADOL HYDROCHLORIDE. [Suspect]
     Active Substance: TRAMADOL HYDROCHLORIDE
  2. TEMAZEPAM. [Suspect]
     Active Substance: TEMAZEPAM
  3. LOSARTAN POTASSIUM. [Suspect]
     Active Substance: LOSARTAN POTASSIUM
  4. CITALOPRAM [Suspect]
     Active Substance: CITALOPRAM HYDROBROMIDE

REACTIONS (2)
  - Toxicity to various agents [Fatal]
  - Completed suicide [Fatal]
